FAERS Safety Report 8759393 (Version 2)
Quarter: 2012Q4

REPORT INFORMATION
  Report Type: 
  Country: AU (occurrence: AU)
  Receive Date: 20120829
  Receipt Date: 20120917
  Transmission Date: 20130627
  Serious: Yes (Other)
  Sender: FDA-Public Use
  Company Number: AU-BAXTER-2012BAX015310

PATIENT
  Age: 74 Year
  Sex: Female

DRUGS (2)
  1. EXTRANEAL 7.5% W_V ICODEXTRIN PERITONEAL DIALYSIS SOLUTION BAG AHB5546 [Suspect]
     Indication: PERITONEAL DIALYSIS
     Route: 033
     Dates: start: 20111101, end: 20120825
  2. EXTRANEAL 7.5% W_V ICODEXTRIN DIALYSIS SOLUTION TWIN BAG WITH DRAINAGE [Suspect]
     Indication: PERITONEAL DIALYSIS
     Route: 033

REACTIONS (5)
  - Scab [Not Recovered/Not Resolved]
  - Blister [Recovering/Resolving]
  - Pruritus [Not Recovered/Not Resolved]
  - Rash [Recovering/Resolving]
  - Skin exfoliation [Recovering/Resolving]
